FAERS Safety Report 6676230-5 (Version None)
Quarter: 2010Q2

REPORT INFORMATION
  Report Type: 
  Country: None (occurrence: None)
  Receive Date: 20100412
  Receipt Date: 20100409
  Transmission Date: 20101027
  Serious: Yes (Life-Threatening, Other)
  Sender: FDA-Public Use
  Company Number: IT-JNJFOC-20081201304

PATIENT
  Sex: Male

DRUGS (11)
  1. LEVOFLOXACIN [Suspect]
     Indication: PNEUMONIA NECROTISING
     Route: 048
  2. RIFADIN [Concomitant]
     Route: 065
  3. MERREM [Concomitant]
     Route: 065
  4. METHADONE HCL [Concomitant]
     Route: 065
  5. VANCOMYCIN HCL [Concomitant]
     Route: 065
  6. LANSOX [Concomitant]
     Route: 065
  7. LUVION [Concomitant]
     Route: 065
  8. POTASSIUM CHLORIDE [Concomitant]
     Route: 065
  9. TAVOR [Concomitant]
     Route: 065
  10. PARACODINA [Concomitant]
     Route: 065
  11. KETOROLAC TROMETHAMINE [Concomitant]
     Route: 065

REACTIONS (6)
  - CARDIO-RESPIRATORY ARREST [None]
  - CHEST PAIN [None]
  - DYSPNOEA [None]
  - ELECTROCARDIOGRAM QT PROLONGED [None]
  - LOSS OF CONSCIOUSNESS [None]
  - PRESYNCOPE [None]
